FAERS Safety Report 6752727-4 (Version None)
Quarter: 2010Q2

REPORT INFORMATION
  Report Type: 
  Country: None (occurrence: None)
  Receive Date: 20100528
  Receipt Date: 20100514
  Transmission Date: 20101027
  Serious: Yes (Death, Hospitalization)
  Sender: FDA-Public Use
  Company Number: 2009AC000128

PATIENT
  Age: 46 Year
  Sex: Male
  Weight: 109.7705 kg

DRUGS (31)
  1. DIGOXIN [Suspect]
     Indication: CARDIOMYOPATHY
     Dosage: 0.25 MG; QD; PO
     Route: 048
     Dates: start: 20050422, end: 20080101
  2. LISINOPRIL [Concomitant]
  3. FUROSEMIDE [Concomitant]
  4. POTASSIUM [Concomitant]
  5. NEXIUM [Concomitant]
  6. MULTI-VITAMIN [Concomitant]
  7. ADVAIR DISKUS 100/50 [Concomitant]
  8. ALBUTEROL [Concomitant]
  9. CYCLOBENZAPRINE [Concomitant]
  10. ADVAIR DISKUS 100/50 [Concomitant]
  11. LISINOPRIL [Concomitant]
  12. FUROSEMIDE [Concomitant]
  13. POTASSIUM [Concomitant]
  14. ROXICET [Concomitant]
  15. METHYLPRED [Concomitant]
  16. AMOX TR-K CL [Concomitant]
  17. CEPHALEXIN [Concomitant]
  18. MEDROL [Concomitant]
  19. LEXAPRO [Concomitant]
  20. NIASPAN [Concomitant]
  21. HYDROCODONE [Concomitant]
  22. DIAZEPAM [Concomitant]
  23. AUGMENTIN '125' [Concomitant]
  24. AZITHROMYCIN [Concomitant]
  25. ROCEPHIN [Concomitant]
  26. ALBUTEROL [Concomitant]
  27. PHENERGAN [Concomitant]
  28. PROMETHAZINE [Concomitant]
  29. PROAIR HFA [Concomitant]
  30. TETANUS [Concomitant]
  31. FLU [Concomitant]

REACTIONS (27)
  - AORTIC VALVE SCLEROSIS [None]
  - ARTERIOSCLEROSIS [None]
  - ARTERIOSCLEROSIS CORONARY ARTERY [None]
  - BRONCHITIS [None]
  - CARDIAC ARREST [None]
  - CERVICAL SPINAL STENOSIS [None]
  - CHRONIC OBSTRUCTIVE PULMONARY DISEASE [None]
  - CONDUCTION DISORDER [None]
  - ECONOMIC PROBLEM [None]
  - EJECTION FRACTION DECREASED [None]
  - EMOTIONAL DISORDER [None]
  - FALL [None]
  - FATIGUE [None]
  - INJURY [None]
  - MITRAL VALVE SCLEROSIS [None]
  - NAUSEA [None]
  - OSTEOARTHRITIS [None]
  - PAIN [None]
  - PAIN IN EXTREMITY [None]
  - PHARYNGITIS STREPTOCOCCAL [None]
  - PLANTAR FASCIITIS [None]
  - PNEUMONIA [None]
  - SINUS BRADYCARDIA [None]
  - SINUSITIS [None]
  - SPINAL OSTEOARTHRITIS [None]
  - SUPRAVENTRICULAR EXTRASYSTOLES [None]
  - VOMITING [None]
